FAERS Safety Report 9297494 (Version 1)
Quarter: 2013Q2

REPORT INFORMATION
  Report Type: Spontaneous
  Country: US (occurrence: US)
  Receive Date: 20130520
  Receipt Date: 20130520
  Transmission Date: 20140414
  Serious: Yes (Hospitalization, Other)
  Sender: FDA-Public Use
  Company Number: US-SANOFI-AVENTIS-2013SA049150

PATIENT
  Age: 82 Year
  Sex: Male

DRUGS (2)
  1. LANTUS SOLOSTAR [Suspect]
     Indication: TYPE 2 DIABETES MELLITUS
     Dosage: 10-20 UNITS AT BEDTIME
  2. SOLOSTAR [Suspect]
     Indication: TYPE 2 DIABETES MELLITUS

REACTIONS (5)
  - Hypoglycaemic unconsciousness [Unknown]
  - Stent placement [Unknown]
  - Hypotension [Unknown]
  - Contusion [Unknown]
  - Blood glucose increased [Unknown]
